FAERS Safety Report 15564735 (Version 4)
Quarter: 2019Q2

REPORT INFORMATION
  Report Type: Spontaneous
  Country: US (occurrence: US)
  Receive Date: 20181030
  Receipt Date: 20190625
  Transmission Date: 20190711
  Serious: Yes (Other)
  Sender: FDA-Public Use
  Company Number: US-PFIZER INC-2018441012

PATIENT
  Age: 37 Year
  Sex: Female

DRUGS (1)
  1. XELJANZ [Suspect]
     Active Substance: TOFACITINIB CITRATE
     Indication: RHEUMATOID ARTHRITIS
     Dosage: 5 MG, TWO TIMES A DAY (1 TABLET, TWO TIMES A DAY)
     Route: 048
     Dates: start: 201809, end: 2019

REACTIONS (9)
  - Wound infection [Recovered/Resolved]
  - Product dose omission [Unknown]
  - Pain [Unknown]
  - Impaired healing [Recovered/Resolved]
  - Sensitivity to weather change [Not Recovered/Not Resolved]
  - Swelling [Recovered/Resolved]
  - Condition aggravated [Not Recovered/Not Resolved]
  - Musculoskeletal stiffness [Unknown]
  - Breast mass [Recovered/Resolved]

NARRATIVE: CASE EVENT DATE: 20190319
